FAERS Safety Report 13823113 (Version 4)
Quarter: 2017Q4

REPORT INFORMATION
  Report Type: Report from Study
  Country: AU (occurrence: AU)
  Receive Date: 20170801
  Receipt Date: 20171010
  Transmission Date: 20180320
  Serious: Yes (Death, Hospitalization, Other)
  Sender: FDA-Public Use
  Company Number: AU-AMGEN-AUSSL2017116167

PATIENT
  Age: 84 Year
  Sex: Male
  Weight: 65 kg

DRUGS (7)
  1. KYPROLIS [Suspect]
     Active Substance: CARFILZOMIB
     Indication: PLASMA CELL MYELOMA
     Dosage: 20 MG/M2, DAY 01 AND DAY 02
     Route: 042
     Dates: start: 20170707, end: 2017
  2. KYPROLIS [Suspect]
     Active Substance: CARFILZOMIB
     Dosage: 56 MG/M2, (89.6 MG, 2 TIMES/WK (THERAPEUTIC))
     Route: 042
     Dates: start: 2017
  3. BACTRIM [Concomitant]
     Active Substance: SULFAMETHOXAZOLE\TRIMETHOPRIM
     Indication: PROPHYLAXIS
     Dosage: UNK
     Dates: end: 2017
  4. METOPROLOL. [Concomitant]
     Active Substance: METOPROLOL
     Indication: HYPERTENSION
     Dosage: 50 MG, BID
  5. POMALIDOMIDE [Suspect]
     Active Substance: POMALIDOMIDE
     Indication: PLASMA CELL MYELOMA
     Dosage: UNK
     Route: 065
  6. DEXAMETHASONE. [Concomitant]
     Active Substance: DEXAMETHASONE
     Indication: PLASMA CELL MYELOMA
     Dosage: UNK
  7. ARANESP [Concomitant]
     Active Substance: DARBEPOETIN ALFA
     Indication: ANAEMIA
     Dosage: 40 MG, QWK

REACTIONS (11)
  - Respiratory failure [Fatal]
  - Pneumocystis jirovecii pneumonia [Fatal]
  - Mitral valve incompetence [Unknown]
  - Blood disorder [Unknown]
  - Left atrial dilatation [Unknown]
  - Pulmonary hypertension [Unknown]
  - Plasma cell myeloma [Unknown]
  - Pyrexia [Unknown]
  - Diarrhoea [Unknown]
  - Oedema peripheral [Unknown]
  - Chronic kidney disease [Unknown]

NARRATIVE: CASE EVENT DATE: 2017
